FAERS Safety Report 7775590-1 (Version None)
Quarter: 2011Q3

REPORT INFORMATION
  Report Type: 
  Country: None (occurrence: None)
  Receive Date: 20110921
  Receipt Date: 20110914
  Transmission Date: 20111222
  Serious: Yes (Other)
  Sender: FDA-Public Use
  Company Number: A0944589A

PATIENT
  Age: 80 Year
  Sex: Female

DRUGS (1)
  1. PRAMOCAINE HYDROCHLORIDE (FORMULATION UNKNOWN) (PRAMOCAINE HYDROCHLORI [Suspect]
     Dosage: TOPICAL
     Route: 061

REACTIONS (3)
  - SKIN EXFOLIATION [None]
  - SKIN ATROPHY [None]
  - IMPAIRED HEALING [None]
